FAERS Safety Report 6018796-4 (Version None)
Quarter: 2008Q4

REPORT INFORMATION
  Report Type: 
  Country: None (occurrence: None)
  Receive Date: 20081222
  Receipt Date: 20081205
  Transmission Date: 20090506
  Serious: Yes (Death, Hospitalization, Other)
  Sender: FDA-Public Use
  Company Number: KV200800985

PATIENT
  Age: 83 Year
  Sex: Female

DRUGS (5)
  1. ISOSORBIDE MONONITRATE [Suspect]
     Indication: BLOOD PRESSURE INCREASED
     Dosage: 60 MG, QD AM, ORAL
     Route: 048
  2. METOPROLOL TARTRATE [Concomitant]
  3. DILTIAZEM [Concomitant]
  4. HYDROXYUREA [Concomitant]
  5. ALLOPURINOL [Concomitant]

REACTIONS (4)
  - DIZZINESS [None]
  - FALL [None]
  - LEUKAEMIA [None]
  - PRODUCT QUALITY ISSUE [None]
